FAERS Safety Report 10191071 (Version 1)
Quarter: 2014Q2

REPORT INFORMATION
  Report Type: Spontaneous
  Country: US (occurrence: US)
  Receive Date: 20140523
  Receipt Date: 20140523
  Transmission Date: 20141212
  Serious: Yes (Hospitalization, Other)
  Sender: FDA-Public Use
  Company Number: US-DRREDDYS-USA/USA/14/0040541

PATIENT
  Age: 33 Year
  Sex: Female

DRUGS (3)
  1. ZOLPIDEM [Suspect]
     Indication: INSOMNIA
     Route: 065
  2. ZOLPIDEM [Suspect]
     Route: 065
  3. CLONAZEPAM [Concomitant]
     Indication: INSOMNIA
     Route: 065

REACTIONS (4)
  - Metamorphopsia [Recovered/Resolved]
  - Schizoaffective disorder [Unknown]
  - Condition aggravated [Unknown]
  - Extra dose administered [Unknown]
